FAERS Safety Report 17720743 (Version 1)
Quarter: 2020Q2

REPORT INFORMATION
  Report Type: Spontaneous
  Country: US (occurrence: US)
  Receive Date: 20200428
  Receipt Date: 20200428
  Transmission Date: 20200714
  Serious: No
  Sender: FDA-Public Use
  Company Number: US-ROCHE-2459238

PATIENT
  Sex: Female

DRUGS (3)
  1. DOXILIN [Suspect]
     Active Substance: DOXYCYCLINE HYDROCHLORIDE
     Indication: OVARIAN CANCER STAGE III
     Route: 065
  2. LYNPARZA [Suspect]
     Active Substance: OLAPARIB
     Indication: OVARIAN CANCER STAGE III
     Route: 065
  3. AVASTIN [Suspect]
     Active Substance: BEVACIZUMAB
     Indication: OVARIAN CANCER STAGE III
     Route: 065

REACTIONS (1)
  - Carbohydrate antigen 125 increased [Not Recovered/Not Resolved]
